FAERS Safety Report 10440799 (Version 1)
Quarter: 2014Q3

REPORT INFORMATION
  Report Type: Spontaneous
  Country: CM (occurrence: CM)
  Receive Date: 20140909
  Receipt Date: 20140909
  Transmission Date: 20150326
  Serious: Yes (Hospitalization)
  Sender: FDA-Public Use
  Company Number: PHHY2014CM110807

PATIENT
  Age: 49 Year
  Sex: Female

DRUGS (3)
  1. MIOREL [Concomitant]
     Active Substance: ORPHENADRINE
     Dosage: UNK UKN, UNK
  2. KLIPAL [Concomitant]
     Active Substance: ACETAMINOPHEN\CODEINE PHOSPHATE
     Dosage: 600/50
  3. FLOTAC [Suspect]
     Active Substance: DICLOFENAC SODIUM
     Indication: BACK PAIN
     Dosage: 1 DF, BID
     Route: 048
     Dates: start: 20140827, end: 20140828

REACTIONS (3)
  - Face oedema [Recovering/Resolving]
  - Hypersensitivity [Recovering/Resolving]
  - Urticaria [Recovering/Resolving]

NARRATIVE: CASE EVENT DATE: 20140827
